FAERS Safety Report 19188333 (Version 3)
Quarter: 2023Q2

REPORT INFORMATION
  Report Type: Spontaneous
  Country: JP (occurrence: JP)
  Receive Date: 20210427
  Receipt Date: 20230529
  Transmission Date: 20230722
  Serious: Yes (Death, Hospitalization, Other)
  Sender: FDA-Public Use
  Company Number: JP-SA-2021SA137618

PATIENT
  Age: 77 Year
  Sex: Male

DRUGS (7)
  1. THYMOGLOBULINE [Suspect]
     Active Substance: LAPINE T-LYMPHOCYTE IMMUNE GLOBULIN
     Indication: Aplastic anaemia
     Dosage: 2.5 MG, QD
     Route: 041
  2. CYCLOSPORINE [Suspect]
     Active Substance: CYCLOSPORINE
     Indication: Aplastic anaemia
     Dosage: 6 MG, QD,  FROM DAY 1
     Route: 048
  3. ELTROMBOPAG OLAMINE [Concomitant]
     Active Substance: ELTROMBOPAG OLAMINE
     Indication: Aplastic anaemia
     Dosage: 75 MG, QD  FROM DAY 1
     Route: 048
  4. ITRACONAZOLE [Concomitant]
     Active Substance: ITRACONAZOLE
     Indication: Antifungal prophylaxis
     Dosage: 100 MG, QD
     Route: 048
  5. SULFAMETHOXAZOLE\TRIMETHOPRIM [Concomitant]
     Active Substance: SULFAMETHOXAZOLE\TRIMETHOPRIM
     Indication: Antifungal prophylaxis
     Dosage: UNK
     Route: 048
  6. HUMAN RED BLOOD CELL [Concomitant]
     Active Substance: HUMAN RED BLOOD CELL
     Indication: Aplastic anaemia
     Dosage: REGULAR TRANSFUSIONS
  7. PLATELETS [Concomitant]
     Active Substance: HUMAN PLATELET, ALLOGENIC
     Indication: Aplastic anaemia
     Dosage: UNK

REACTIONS (14)
  - Fungal endocarditis [Fatal]
  - Decreased appetite [Fatal]
  - Malaise [Fatal]
  - Oedema peripheral [Fatal]
  - Pyrexia [Fatal]
  - Fatigue [Fatal]
  - Septic embolus [Fatal]
  - Off label use [Fatal]
  - Multiple organ dysfunction syndrome [Fatal]
  - Splenic lesion [Fatal]
  - Lung consolidation [Fatal]
  - Acute myocardial infarction [Fatal]
  - Coronary artery embolism [Fatal]
  - Immunosuppression [Fatal]
